FAERS Safety Report 13034289 (Version 1)
Quarter: 2016Q4

REPORT INFORMATION
  Report Type: Spontaneous
  Country: US (occurrence: US)
  Receive Date: 20161216
  Receipt Date: 20161216
  Transmission Date: 20170207
  Serious: No
  Sender: FDA-Public Use
  Company Number: US-JNJFOC-20161123709

PATIENT
  Age: 33 Year
  Sex: Female
  Weight: 56.25 kg

DRUGS (2)
  1. MENS ROGAINE EXTRA STRENGTH [Suspect]
     Active Substance: MINOXIDIL
     Indication: ANDROGENETIC ALOPECIA
     Route: 061
  2. MENS ROGAINE EXTRA STRENGTH [Suspect]
     Active Substance: MINOXIDIL
     Indication: ANDROGENETIC ALOPECIA
     Dosage: 1/2 CAPFUL, 2X PER DAY, NEXT DAY 1/2 CAPFUL 1 TIME PER DAY
     Route: 061
     Dates: start: 20161117

REACTIONS (6)
  - Paraesthesia [Unknown]
  - Product use issue [Unknown]
  - Overdose [Unknown]
  - Off label use [Unknown]
  - Application site coldness [Unknown]
  - Product formulation issue [Unknown]
